FAERS Safety Report 17851003 (Version 1)
Quarter: 2020Q2

REPORT INFORMATION
  Report Type: Spontaneous
  Country: KR (occurrence: KR)
  Receive Date: 20200602
  Receipt Date: 20200602
  Transmission Date: 20200714
  Serious: Yes (Death, Hospitalization, Other)
  Sender: FDA-Public Use
  Company Number: KR-AMGEN-KORSP2020085569

PATIENT
  Age: 28 Year
  Sex: Female

DRUGS (3)
  1. BLINCYTO [Suspect]
     Active Substance: BLINATUMOMAB
     Dosage: UNK
     Route: 065
     Dates: start: 20190312
  2. BLINCYTO [Suspect]
     Active Substance: BLINATUMOMAB
     Indication: B PRECURSOR TYPE ACUTE LEUKAEMIA
     Dosage: UNK
     Route: 065
     Dates: start: 20170701
  3. BUSULFAN;FLUDARABINE [Concomitant]
     Dosage: UNK
     Dates: start: 20171003

REACTIONS (4)
  - Hospitalisation [Not Recovered/Not Resolved]
  - Pneumonia [Fatal]
  - Leukaemic infiltration extramedullary [Recovered/Resolved]
  - Bone marrow leukaemic cell infiltration [Recovered/Resolved]

NARRATIVE: CASE EVENT DATE: 20190304
